FAERS Safety Report 8668443 (Version 2)
Quarter: 2012Q4

REPORT INFORMATION
  Report Type: 
  Country: US (occurrence: US)
  Receive Date: 20120717
  Receipt Date: 20120830
  Transmission Date: 20130627
  Serious: Yes (Death, Other)
  Sender: FDA-Public Use
  Company Number: US-PFIZER INC-2012169114

PATIENT
  Age: 65 Year
  Sex: Male

DRUGS (1)
  1. ZYVOX [Suspect]
     Dosage: UNK

REACTIONS (1)
  - Neoplasm malignant [Fatal]
